FAERS Safety Report 14467480 (Version 1)
Quarter: 2018Q1

REPORT INFORMATION
  Report Type: Spontaneous
  Country: US (occurrence: US)
  Receive Date: 20180130
  Receipt Date: 20180130
  Transmission Date: 20180509
  Serious: No
  Sender: FDA-Public Use
  Company Number: None

PATIENT
  Sex: Female

DRUGS (1)
  1. IBRANCE [Suspect]
     Active Substance: PALBOCICLIB
     Indication: BREAST CANCER FEMALE
     Dosage: DAILY X 21 DAYS OF 28-DAY CYCLE
     Route: 048
     Dates: start: 20180104

REACTIONS (3)
  - Sleep disorder [None]
  - Stomatitis [None]
  - Peripheral swelling [None]
